FAERS Safety Report 9029114 (Version 2)
Quarter: 2013Q1

REPORT INFORMATION
  Report Type: Spontaneous
  Country: US (occurrence: US)
  Receive Date: 20130122
  Receipt Date: 20130227
  Transmission Date: 20140127
  Serious: Yes (Congenital Anomaly)
  Sender: FDA-Public Use
  Company Number: US-PFIZER INC-2013022368

PATIENT
  Sex: Female

DRUGS (7)
  1. ZOLOFT [Suspect]
     Dosage: UNK
     Route: 064
     Dates: start: 20070914, end: 20080708
  2. SERTRALINE HCL [Suspect]
     Dosage: UNK
     Route: 064
     Dates: start: 20070914, end: 20080708
  3. ZOVIA [Concomitant]
     Dosage: UNK
     Route: 064
  4. VALTREX [Concomitant]
     Dosage: UNK
     Route: 064
  5. L-THYROXINE [Concomitant]
     Dosage: UNK
     Route: 064
  6. PANTOPRAZOLE [Concomitant]
     Dosage: UNK
     Route: 064
  7. WELLBUTRIN [Concomitant]
     Dosage: UNK
     Route: 064

REACTIONS (3)
  - Maternal exposure timing unspecified [Unknown]
  - Atrial septal defect [Unknown]
  - Congenital anomaly [Unknown]
